FAERS Safety Report 14316380 (Version 1)
Quarter: 2017Q4

REPORT INFORMATION
  Report Type: Spontaneous
  Country: US (occurrence: US)
  Receive Date: 20171222
  Receipt Date: 20171222
  Transmission Date: 20180321
  Serious: Yes (Hospitalization, Other)
  Sender: FDA-Public Use
  Company Number: US-SUN PHARMACEUTICAL INDUSTRIES LTD-2017US-157700

PATIENT
  Sex: Female

DRUGS (2)
  1. METHOTREXATE. [Suspect]
     Active Substance: METHOTREXATE
     Indication: LEIOMYOMA
     Dosage: UNK
     Route: 065
  2. VINBLASTINE [Suspect]
     Active Substance: VINBLASTINE
     Indication: LEIOMYOMA
     Dosage: UNK
     Route: 065

REACTIONS (2)
  - Febrile neutropenia [Unknown]
  - Mucosal inflammation [Unknown]
